FAERS Safety Report 21603272 (Version 1)
Quarter: 2022Q4

REPORT INFORMATION
  Report Type: Other
  Country: FR (occurrence: FR)
  Receive Date: 20221116
  Receipt Date: 20221116
  Transmission Date: 20230112
  Serious: Yes (Hospitalization, Other)
  Sender: FDA-Public Use
  Company Number: FR-Osmotica_Pharmaceutical_US_LLC-POI0573202200115

PATIENT
  Age: 29 Year
  Sex: Female
  Weight: 55 kg

DRUGS (4)
  1. DIVIGEL [Suspect]
     Active Substance: ESTRADIOL
     Indication: Product used for unknown indication
     Route: 065
     Dates: start: 2012, end: 201711
  2. CYPROTERONE ACETATE [Suspect]
     Active Substance: CYPROTERONE ACETATE
     Indication: Virilism
     Route: 065
     Dates: start: 20040615
  3. CYPROTERONE ACETATE [Suspect]
     Active Substance: CYPROTERONE ACETATE
     Route: 065
     Dates: start: 2012, end: 201711
  4. ACETAMINOPHEN\PROPOXYPHENE HYDROCHLORIDE [Suspect]
     Active Substance: ACETAMINOPHEN\PROPOXYPHENE HYDROCHLORIDE
     Indication: Ill-defined disorder
     Route: 065

REACTIONS (7)
  - Meningioma [Unknown]
  - Amnesia [Unknown]
  - Frontotemporal dementia [Unknown]
  - Headache [Unknown]
  - Aphasia [Unknown]
  - Mood swings [Unknown]
  - Irritability [Unknown]

NARRATIVE: CASE EVENT DATE: 20170101
